FAERS Safety Report 10473409 (Version 2)
Quarter: 2014Q4

REPORT INFORMATION
  Report Type: Spontaneous
  Country: US (occurrence: US)
  Receive Date: 20140924
  Receipt Date: 20141014
  Transmission Date: 20150528
  Serious: No
  Sender: FDA-Public Use
  Company Number: US-009507513-1409USA011112

PATIENT

DRUGS (1)
  1. NOXAFIL [Suspect]
     Active Substance: POSACONAZOLE
     Indication: LEUKAEMIA RECURRENT PROPHYLAXIS
     Dosage: 300 MG, UNK
     Route: 042

REACTIONS (1)
  - Flushing [Unknown]
